FAERS Safety Report 7397507-4 (Version None)
Quarter: 2011Q2

REPORT INFORMATION
  Report Type: 
  Country: None (occurrence: None)
  Receive Date: 20110406
  Receipt Date: 20110328
  Transmission Date: 20111010
  Serious: Yes (Other)
  Sender: FDA-Public Use
  Company Number: IT-PFIZER INC-2011072987

PATIENT
  Age: 30 Year
  Sex: Male

DRUGS (2)
  1. SAQUINAVIR [Suspect]
     Indication: HIV INFECTION
     Dosage: UNK
     Dates: start: 19950801, end: 20000901
  2. NELFINAVIR MESILATE [Suspect]
     Indication: HIV INFECTION
     Dosage: UNK
     Dates: start: 19980501, end: 19990401

REACTIONS (5)
  - MENTAL DISORDER [None]
  - DIARRHOEA [None]
  - DERMATITIS ALLERGIC [None]
  - VIROLOGIC FAILURE [None]
  - PRURITUS [None]
